FAERS Safety Report 10517850 (Version 2)
Quarter: 2014Q4

REPORT INFORMATION
  Report Type: Report from Study
  Country: US (occurrence: US)
  Receive Date: 20141015
  Receipt Date: 20141219
  Transmission Date: 20150528
  Serious: Yes (Other)
  Sender: FDA-Public Use
  Company Number: US-BEH-2014045533

PATIENT
  Age: 21 Year
  Sex: Female

DRUGS (2)
  1. CYTOGAM [Suspect]
     Active Substance: HUMAN CYTOMEGALOVIRUS IMMUNE GLOBULIN
     Indication: CYTOMEGALOVIRUS INFECTION
  2. ALBUMINAR-5 [Suspect]
     Active Substance: ALBUMIN (HUMAN)
     Indication: CYTOMEGALOVIRUS INFECTION
     Route: 042
     Dates: start: 20140613, end: 20140613

REACTIONS (2)
  - Exposure during pregnancy [Recovered/Resolved]
  - Foetal death [Recovered/Resolved]

NARRATIVE: CASE EVENT DATE: 20140613
